FAERS Safety Report 5914520-1 (Version None)
Quarter: 2008Q4

REPORT INFORMATION
  Report Type: 
  Country: None (occurrence: None)
  Receive Date: 20081008
  Receipt Date: 20080924
  Transmission Date: 20090506
  Serious: Yes (Other)
  Sender: FDA-Public Use
  Company Number: CERZ-1000230

PATIENT
  Age: 37 Year
  Sex: Female
  Weight: 70.5 kg

DRUGS (4)
  1. CEREZYME [Suspect]
     Indication: GAUCHER'S DISEASE
     Dosage: INTRAVENOUS; 30 U/KG, Q2W, INTRAVENOUS; 23 U/KG, Q2W, INTRAVENOUS
     Route: 042
     Dates: start: 19990325, end: 20060629
  2. CEREZYME [Suspect]
     Indication: GAUCHER'S DISEASE
     Dosage: INTRAVENOUS; 30 U/KG, Q2W, INTRAVENOUS; 23 U/KG, Q2W, INTRAVENOUS
     Route: 042
     Dates: end: 20080213
  3. CEREZYME [Suspect]
     Indication: GAUCHER'S DISEASE
     Dosage: INTRAVENOUS; 30 U/KG, Q2W, INTRAVENOUS; 23 U/KG, Q2W, INTRAVENOUS
     Route: 042
     Dates: start: 20061106
  4. CEREZYME [Suspect]
     Indication: GAUCHER'S DISEASE
     Dosage: INTRAVENOUS; 30 U/KG, Q2W, INTRAVENOUS; 23 U/KG, Q2W, INTRAVENOUS
     Route: 042
     Dates: start: 20080512

REACTIONS (6)
  - ABORTION SPONTANEOUS [None]
  - DEPRESSION [None]
  - DRUG EXPOSURE DURING PREGNANCY [None]
  - GENITAL HAEMORRHAGE [None]
  - PREGNANCY [None]
  - TACHYCARDIA [None]
